FAERS Safety Report 4922599-9 (Version None)
Quarter: 2006Q1

REPORT INFORMATION
  Report Type: 
  Country: None (occurrence: None)
  Receive Date: 20060224
  Receipt Date: 20060216
  Transmission Date: 20060701
  Serious: Yes (Life-Threatening)
  Sender: FDA-Public Use
  Company Number: FR-GLAXOSMITHKLINE-B0412666A

PATIENT
  Age: 48 Year
  Sex: Female

DRUGS (2)
  1. ZYBAN [Suspect]
     Route: 048
     Dates: start: 20060129
  2. LEXOMIL [Suspect]
     Route: 048
     Dates: start: 20060126

REACTIONS (2)
  - INTENTIONAL OVERDOSE [None]
  - SUICIDE ATTEMPT [None]
